FAERS Safety Report 6493933-6 (Version None)
Quarter: 2009Q4

REPORT INFORMATION
  Report Type: 
  Country: None (occurrence: None)
  Receive Date: 20091214
  Receipt Date: 20081125
  Transmission Date: 20100525
  Serious: No
  Sender: FDA-Public Use
  Company Number: US-BRISTOL-MYERS SQUIBB COMPANY-14420467

PATIENT
  Age: 52 Year
  Sex: Female
  Weight: 73 kg

DRUGS (5)
  1. ABILIFY [Suspect]
     Indication: BIPOLAR DISORDER
     Dosage: PATIENT WAS STARTED ON 5MG THEN TITRATED TO 15 MG ON SEP2008
  2. TOPAMAX [Concomitant]
  3. NEURONTIN [Concomitant]
  4. LAMICTAL [Concomitant]
  5. LUNESTA [Concomitant]

REACTIONS (1)
  - TARDIVE DYSKINESIA [None]
